FAERS Safety Report 12037586 (Version 1)
Quarter: 2016Q1

REPORT INFORMATION
  Report Type: Spontaneous
  Country: DE (occurrence: DE)
  Receive Date: 20160208
  Receipt Date: 20160208
  Transmission Date: 20160526
  Serious: Yes (Other)
  Sender: FDA-Public Use
  Company Number: DE-BAYER-2016-023992

PATIENT
  Age: 0 Day
  Sex: Female
  Weight: 2.26 kg

DRUGS (2)
  1. BETAFERON [Suspect]
     Active Substance: INTERFERON BETA-1B
     Dosage: UNK
     Route: 064
     Dates: end: 20150112
  2. BETAFERON [Suspect]
     Active Substance: INTERFERON BETA-1B
     Dosage: UNK
     Route: 064
     Dates: end: 20150112

REACTIONS (3)
  - Premature delivery [None]
  - Maternal exposure during pregnancy [None]
  - Low birth weight baby [None]

NARRATIVE: CASE EVENT DATE: 20150811
